FAERS Safety Report 13353235 (Version 1)
Quarter: 2017Q1

REPORT INFORMATION
  Report Type: Spontaneous
  Country: US (occurrence: US)
  Receive Date: 20170321
  Receipt Date: 20170321
  Transmission Date: 20170429
  Serious: Yes (Other)
  Sender: FDA-Public Use
  Company Number: US-GLENMARK PHARMACEUTICALS INC, USA.-2016GMK024010

PATIENT

DRUGS (2)
  1. ZONISAMIDE. [Suspect]
     Active Substance: ZONISAMIDE
     Indication: FIBROMYALGIA
     Dosage: 1 DF, AM
     Route: 048
     Dates: start: 20160718, end: 20160811
  2. ZONISAMIDE. [Suspect]
     Active Substance: ZONISAMIDE
     Indication: PAIN

REACTIONS (10)
  - Sinusitis [Unknown]
  - Eye irritation [Recovering/Resolving]
  - Pharyngitis [Recovering/Resolving]
  - Insomnia [Unknown]
  - Ear pain [Recovering/Resolving]
  - Feeding disorder [Unknown]
  - Dyspepsia [Not Recovered/Not Resolved]
  - Ear haemorrhage [Unknown]
  - Pharyngeal haemorrhage [Unknown]
  - Product use issue [Unknown]

NARRATIVE: CASE EVENT DATE: 20160718
